FAERS Safety Report 6602629-9 (Version None)
Quarter: 2010Q1

REPORT INFORMATION
  Report Type: 
  Country: None (occurrence: None)
  Receive Date: 20100225
  Receipt Date: 20100216
  Transmission Date: 20100710
  Serious: Yes (Hospitalization)
  Sender: FDA-Public Use
  Company Number: JP-AMGEN-US352878

PATIENT
  Sex: Male
  Weight: 68 kg

DRUGS (8)
  1. ENBREL [Suspect]
     Indication: RHEUMATOID ARTHRITIS
     Route: 058
     Dates: start: 20080804, end: 20081006
  2. ENBREL [Suspect]
     Route: 058
     Dates: start: 20081119, end: 20090116
  3. ENBREL [Suspect]
     Dosage: LYOPHILIZED: 25 MG TWICE WEEKLY
     Route: 058
     Dates: start: 20071210, end: 20080731
  4. OPALMON [Suspect]
     Dosage: UNSPECIFIED
     Route: 048
  5. PREDONINE [Suspect]
     Indication: RHEUMATOID ARTHRITIS
     Route: 048
     Dates: end: 20080207
  6. METHOTREXATE [Suspect]
     Indication: RHEUMATOID ARTHRITIS
     Route: 048
     Dates: start: 20070207, end: 20081106
  7. BAKTAR [Concomitant]
     Dosage: UNSPECIFIED
     Route: 048
  8. BUCILLAMINE [Concomitant]
     Indication: RHEUMATOID ARTHRITIS
     Route: 048
     Dates: end: 20080207

REACTIONS (2)
  - DISSEMINATED TUBERCULOSIS [None]
  - PNEUMONIA [None]
